FAERS Safety Report 24846567 (Version 1)
Quarter: 2025Q1

REPORT INFORMATION
  Report Type: Spontaneous
  Country: FR (occurrence: FR)
  Receive Date: 20250115
  Receipt Date: 20250115
  Transmission Date: 20250408
  Serious: Yes (Hospitalization)
  Sender: TEVA
  Company Number: None

PATIENT
  Age: 33 Year
  Sex: Female
  Weight: 53 kg

DRUGS (3)
  1. PROPRANOLOL [Suspect]
     Active Substance: PROPRANOLOL HYDROCHLORIDE
     Indication: Intentional overdose
     Route: 048
     Dates: start: 20241031, end: 20241031
  2. TRAMADOL [Suspect]
     Active Substance: TRAMADOL
     Indication: Intentional overdose
     Dosage: TRAMADOL BASE
     Route: 048
     Dates: start: 20241031, end: 20241031
  3. SERTRALINE HYDROCHLORIDE [Concomitant]
     Active Substance: SERTRALINE HYDROCHLORIDE
     Indication: Intentional overdose
     Route: 048
     Dates: start: 20241031, end: 20241031

REACTIONS (4)
  - Bradycardia [Recovered/Resolved]
  - Hypotension [Recovered/Resolved]
  - Poisoning deliberate [Recovered/Resolved]
  - Miosis [Recovered/Resolved]

NARRATIVE: CASE EVENT DATE: 20241031
